FAERS Safety Report 14419445 (Version 1)
Quarter: 2018Q1

REPORT INFORMATION
  Report Type: Spontaneous
  Country: US (occurrence: US)
  Receive Date: 20180120
  Receipt Date: 20180120
  Transmission Date: 20180509
  Serious: No
  Sender: FDA-Public Use
  Company Number: None

PATIENT
  Age: 71 Year
  Sex: Male
  Weight: 94.5 kg

DRUGS (9)
  1. LOSARTAN. [Concomitant]
     Active Substance: LOSARTAN
  2. OSELTAMIVIR PHOS 75 MG TAMIFLU CAPSULES [Suspect]
     Active Substance: OSELTAMIVIR PHOSPHATE
     Indication: INFLUENZA
     Dosage: ?          QUANTITY:10 CAPSULE(S);?
     Route: 048
     Dates: start: 20180105, end: 20180106
  3. MULTI VITAMIN [Concomitant]
     Active Substance: VITAMINS
  4. ELLIQUIS [Concomitant]
  5. LIPITOR [Concomitant]
     Active Substance: ATORVASTATIN CALCIUM
  6. VITAMIN D3 [Concomitant]
     Active Substance: CHOLECALCIFEROL
  7. LIPITOR [Concomitant]
     Active Substance: ATORVASTATIN CALCIUM
  8. VITAMIN B12 [Concomitant]
     Active Substance: CYANOCOBALAMIN
  9. TIKOSYN [Concomitant]
     Active Substance: DOFETILIDE

REACTIONS (4)
  - Confusional state [None]
  - Dizziness [None]
  - Vertigo [None]
  - Agitation [None]

NARRATIVE: CASE EVENT DATE: 20180106
